FAERS Safety Report 18428912 (Version 1)
Quarter: 2020Q4

REPORT INFORMATION
  Report Type: Spontaneous
  Country: JP (occurrence: JP)
  Receive Date: 20201026
  Receipt Date: 20201026
  Transmission Date: 20210114
  Serious: Yes (Other)
  Sender: FDA-Public Use
  Company Number: JP-UPSHER-SMITH LABORATORIES, LLC-2020USL00563

PATIENT
  Age: 82 Year
  Sex: Male

DRUGS (3)
  1. AZILSARTAN [Suspect]
     Active Substance: AZILSARTAN KAMEDOXOMIL
     Dosage: 20 MG, 1X/DAY
     Route: 065
  2. FLUVOXAMINE MALEATE. [Suspect]
     Active Substance: FLUVOXAMINE MALEATE
     Indication: DEPRESSION
     Dosage: 50 MG, 1X/DAY
     Route: 065
  3. LITHIUM. [Suspect]
     Active Substance: LITHIUM
     Dosage: 600 MG, 1X/DAY
     Route: 065

REACTIONS (2)
  - Drug interaction [Recovered/Resolved]
  - Toxicity to various agents [Recovered/Resolved]
